FAERS Safety Report 9245741 (Version 1)
Quarter: 2013Q2

REPORT INFORMATION
  Report Type: Report from Study
  Country: AR (occurrence: AR)
  Receive Date: 20130422
  Receipt Date: 20130422
  Transmission Date: 20140414
  Serious: Yes (Other)
  Sender: FDA-Public Use
  Company Number: AR-ROCHE-1216566

PATIENT
  Age: 60 Year
  Sex: Female

DRUGS (1)
  1. XOLAIR [Suspect]
     Indication: TOTAL LUNG CAPACITY DECREASED
     Route: 058
     Dates: start: 20130222, end: 20130222

REACTIONS (1)
  - Bronchospasm [Recovering/Resolving]
